FAERS Safety Report 24363232 (Version 1)
Quarter: 2024Q3

REPORT INFORMATION
  Report Type: Spontaneous
  Country: US (occurrence: US)
  Receive Date: 20240925
  Receipt Date: 20240925
  Transmission Date: 20241017
  Serious: Yes (Other)
  Sender: PFIZER
  Company Number: US-SEATTLE GENETICS-2023SGN05586

PATIENT
  Age: 79 Year
  Sex: Female

DRUGS (4)
  1. ADCETRIS [Suspect]
     Active Substance: BRENTUXIMAB VEDOTIN
     Indication: Lymphoma
     Dosage: UNK
     Route: 065
     Dates: start: 20230511, end: 20230511
  2. DOXORUBICIN HYDROCHLORIDE [Suspect]
     Active Substance: DOXORUBICIN HYDROCHLORIDE
     Dosage: UNK
     Route: 065
     Dates: start: 20230511, end: 20230511
  3. DACARBAZINE [Suspect]
     Active Substance: DACARBAZINE
     Indication: Lymphoma
     Dosage: UNK
     Route: 065
     Dates: start: 20230511
  4. VINBLASTINE [Suspect]
     Active Substance: VINBLASTINE
     Indication: Lymphoma
     Dosage: UNK
     Route: 065
     Dates: start: 20230511

REACTIONS (6)
  - Brain fog [Recovering/Resolving]
  - Gait disturbance [Recovering/Resolving]
  - Aphasia [Recovering/Resolving]
  - Feeding disorder [Recovering/Resolving]
  - Movement disorder [Recovering/Resolving]
  - Loss of personal independence in daily activities [Recovering/Resolving]

NARRATIVE: CASE EVENT DATE: 20230525
